FAERS Safety Report 7627280-3 (Version None)
Quarter: 2011Q3

REPORT INFORMATION
  Report Type: 
  Country: None (occurrence: None)
  Receive Date: 20110721
  Receipt Date: 20110713
  Transmission Date: 20111222
  Serious: Yes (Other)
  Sender: FDA-Public Use
  Company Number: PHHY2011US43001

PATIENT
  Sex: Female

DRUGS (4)
  1. VIVELLE-DOT [Suspect]
     Dosage: 0.037 MG, UNK
     Route: 062
  2. VIVELLE-DOT [Suspect]
     Dosage: 0.05 MG, UNK
     Route: 062
  3. VIVELLE-DOT [Suspect]
     Dosage: 0.01 MG, UNK
     Route: 062
  4. VIVELLE-DOT [Suspect]
     Dosage: 0.075 MG, UNK
     Route: 062

REACTIONS (4)
  - DEPRESSION [None]
  - HOT FLUSH [None]
  - DRUG INEFFECTIVE [None]
  - DYSPEPSIA [None]
